FAERS Safety Report 6784672-2 (Version None)
Quarter: 2010Q2

REPORT INFORMATION
  Report Type: 
  Country: None (occurrence: None)
  Receive Date: 20100622
  Receipt Date: 20100614
  Transmission Date: 20101027
  Serious: Yes (Other)
  Sender: FDA-Public Use
  Company Number: US-PFIZER INC-2010074909

PATIENT
  Age: 23 Year
  Sex: Male

DRUGS (3)
  1. ALPRAZOLAM [Suspect]
  2. RISPERIDONE [Suspect]
  3. ACETAMINOPHEN AND HYDROCODONE BITARTRATE [Suspect]

REACTIONS (3)
  - ATRIOVENTRICULAR BLOCK [None]
  - ATRIOVENTRICULAR BLOCK SECOND DEGREE [None]
  - REFUSAL OF TREATMENT BY PATIENT [None]
